FAERS Safety Report 14831395 (Version 1)
Quarter: 2018Q2

REPORT INFORMATION
  Report Type: Report from Study
  Country: US (occurrence: US)
  Receive Date: 20180501
  Receipt Date: 20180501
  Transmission Date: 20180711
  Serious: No
  Sender: FDA-Public Use
  Company Number: US-AMGEN-USASL2018055563

PATIENT
  Sex: Female

DRUGS (1)
  1. ENBREL [Suspect]
     Active Substance: ETANERCEPT
     Indication: PSORIASIS
     Dosage: 50 MG, 2 TIMES/WK
     Route: 065

REACTIONS (5)
  - Injection site warmth [Recovering/Resolving]
  - Musculoskeletal disorder [Unknown]
  - Skin fissures [Unknown]
  - Injection site mass [Recovering/Resolving]
  - Injection site erythema [Recovering/Resolving]
